FAERS Safety Report 13323018 (Version 1)
Quarter: 2017Q1

REPORT INFORMATION
  Report Type: Spontaneous
  Country: BR (occurrence: BR)
  Receive Date: 20170310
  Receipt Date: 20170310
  Transmission Date: 20170428
  Serious: Yes (Other)
  Sender: FDA-Public Use
  Company Number: BR-PFIZER INC-2017099064

PATIENT
  Age: 79 Year
  Sex: Female

DRUGS (3)
  1. XALATAN [Suspect]
     Active Substance: LATANOPROST
     Dosage: EVERY NIGHT (1 DROP IN EACH EYE)
     Route: 047
  2. XALATAN [Suspect]
     Active Substance: LATANOPROST
     Dosage: ONLY WHEN THE EYES SCRATCHED OR ONE DAY YES AND ONE DAY NO
     Route: 047
  3. XALATAN [Suspect]
     Active Substance: LATANOPROST
     Indication: INTRAOCULAR PRESSURE INCREASED
     Dosage: STARTED USING IN THE MORNING AND AT NIGHT
     Route: 047

REACTIONS (5)
  - Intentional product misuse [Unknown]
  - Intraocular pressure increased [Unknown]
  - Product use issue [Unknown]
  - Cataract [Unknown]
  - Eye irritation [Unknown]
